FAERS Safety Report 22044282 (Version 1)
Quarter: 2023Q1

REPORT INFORMATION
  Report Type: Spontaneous
  Country: US (occurrence: US)
  Receive Date: 20230228
  Receipt Date: 20230228
  Transmission Date: 20230418
  Serious: Yes (Death, Hospitalization)
  Sender: FDA-Public Use
  Company Number: US-MYLANLABS-2023M1020898

PATIENT
  Age: 24 Year
  Sex: Female

DRUGS (6)
  1. DEXAMETHASONE [Suspect]
     Active Substance: DEXAMETHASONE
     Indication: Neurocysticercosis
     Dosage: 0.1 MILLIGRAM/KILOGRAM, QD
     Route: 065
  2. SODIUM CHLORIDE [Suspect]
     Active Substance: SODIUM CHLORIDE
     Indication: Brain oedema
     Dosage: UNK
     Route: 065
  3. VANCOMYCIN [Suspect]
     Active Substance: VANCOMYCIN
     Indication: Beta haemolytic streptococcal infection
     Dosage: UNK
     Route: 065
  4. MEROPENEM [Suspect]
     Active Substance: MEROPENEM
     Indication: Beta haemolytic streptococcal infection
     Dosage: UNK
     Route: 065
  5. ALBENDAZOLE [Concomitant]
     Active Substance: ALBENDAZOLE
     Indication: Neurocysticercosis
     Dosage: UNK
     Route: 065
  6. PRAZIQUANTEL [Concomitant]
     Active Substance: PRAZIQUANTEL
     Indication: Neurocysticercosis
     Dosage: UNK
     Route: 065

REACTIONS (7)
  - Beta haemolytic streptococcal infection [Fatal]
  - Unresponsive to stimuli [Fatal]
  - CNS ventriculitis [Fatal]
  - Hydrocephalus [Fatal]
  - Cerebral mass effect [Fatal]
  - Abscess [Fatal]
  - Drug ineffective [Fatal]
